FAERS Safety Report 5580575-X (Version None)
Quarter: 2008Q1

REPORT INFORMATION
  Report Type: 
  Country: None (occurrence: None)
  Receive Date: 20080103
  Receipt Date: 20071219
  Transmission Date: 20080703
  Serious: Yes (Other)
  Sender: FDA-Public Use
  Company Number: US-AMGEN-US255629

PATIENT
  Sex: Male
  Weight: 124 kg

DRUGS (13)
  1. SENSIPAR [Suspect]
     Indication: HYPERPARATHYROIDISM SECONDARY
     Route: 048
     Dates: start: 20070307
  2. COUMADIN [Concomitant]
     Route: 065
  3. ZOCOR [Concomitant]
     Route: 065
     Dates: start: 20060630
  4. ATENOLOL [Concomitant]
     Route: 065
     Dates: start: 20060109
  5. CELEXA [Concomitant]
     Route: 065
     Dates: start: 20071102
  6. HUMULIN N [Concomitant]
     Route: 065
     Dates: start: 20060508
  7. HUMALOG [Concomitant]
     Route: 065
     Dates: start: 20060508
  8. FIBERCON [Concomitant]
     Route: 065
     Dates: start: 20040226
  9. RENAGEL [Concomitant]
     Route: 065
     Dates: start: 20050726
  10. MICARDIS [Concomitant]
     Route: 065
     Dates: start: 20010806
  11. HECTORAL [Concomitant]
     Route: 065
     Dates: start: 20070827
  12. FERRLECIT TABLET [Concomitant]
     Route: 065
     Dates: start: 20040910
  13. EPOGEN [Concomitant]
     Route: 065
     Dates: start: 20040805

REACTIONS (4)
  - BREAST DISCHARGE [None]
  - BREAST MASS [None]
  - BREAST TENDERNESS [None]
  - GYNAECOMASTIA [None]
